FAERS Safety Report 8523534-7 (Version None)
Quarter: 2012Q3

REPORT INFORMATION
  Report Type: 
  Country: None (occurrence: None)
  Receive Date: 20120720
  Receipt Date: 20120712
  Transmission Date: 20120928
  Serious: No
  Sender: FDA-Public Use
  Company Number: US-BAYER-2012-071104

PATIENT

DRUGS (5)
  1. ALEVE (CAPLET) [Suspect]
     Indication: ANALGESIC THERAPY
     Dosage: UNK
     Route: 048
  2. MOTRIN [Concomitant]
  3. MUSCLE RUB [MENTHOL,METHYL SALICYLATE] [Concomitant]
  4. NAPROXEN [Concomitant]
  5. ADVIL [Concomitant]

REACTIONS (1)
  - PAIN [None]
